FAERS Safety Report 20652165 (Version 1)
Quarter: 2022Q1

REPORT INFORMATION
  Report Type: Spontaneous
  Country: CA (occurrence: CA)
  Receive Date: 20220330
  Receipt Date: 20220330
  Transmission Date: 20220423
  Serious: Yes (Other)
  Sender: FDA-Public Use
  Company Number: None

PATIENT

DRUGS (2)
  1. METHOTREXATE [Suspect]
     Active Substance: METHOTREXATE
     Indication: Product used for unknown indication
     Route: 065
  2. HUMIRA [Suspect]
     Active Substance: ADALIMUMAB
     Indication: Product used for unknown indication
     Dosage: 1 EVERY 1 WEEKS
     Route: 058

REACTIONS (7)
  - Gastrointestinal disorder [Unknown]
  - Palpitations [Unknown]
  - Retinal ischaemia [Unknown]
  - Retinal neovascularisation [Unknown]
  - Retinal vasculitis [Unknown]
  - Seizure [Unknown]
  - Syncope [Unknown]
